FAERS Safety Report 26044573 (Version 2)
Quarter: 2025Q4

REPORT INFORMATION
  Report Type: Spontaneous
  Country: US (occurrence: US)
  Receive Date: 20251114
  Receipt Date: 20251124
  Transmission Date: 20260117
  Serious: Yes (Hospitalization, Other)
  Sender: BRISTOL-MYERS SQUIBB COMPANY
  Company Number: US-BRISTOL-MYERS SQUIBB COMPANY-2025-153275

PATIENT
  Age: 35 Year
  Sex: Female

DRUGS (4)
  1. ELIQUIS [Suspect]
     Active Substance: APIXABAN
     Indication: Atrial fibrillation
     Dates: start: 202504
  2. ELIQUIS [Suspect]
     Active Substance: APIXABAN
  3. TIKOSYN [Concomitant]
     Active Substance: DOFETILIDE
     Indication: Product used for unknown indication
  4. METOPROLOL [Concomitant]
     Active Substance: METOPROLOL
     Indication: Product used for unknown indication

REACTIONS (5)
  - Nervous system disorder [Unknown]
  - Conduction disorder [Unknown]
  - Dysmenorrhoea [Unknown]
  - Asthenia [Unknown]
  - Thrombosis [Unknown]

NARRATIVE: CASE EVENT DATE: 20251107
